FAERS Safety Report 10197877 (Version 1)
Quarter: 2014Q2

REPORT INFORMATION
  Report Type: Spontaneous
  Country: IT (occurrence: IT)
  Receive Date: 20140527
  Receipt Date: 20140527
  Transmission Date: 20141212
  Serious: Yes (Hospitalization)
  Sender: FDA-Public Use
  Company Number: IT-BRISTOL-MYERS SQUIBB COMPANY-20774048

PATIENT
  Age: 87 Year
  Sex: Female

DRUGS (5)
  1. COUMADIN TABS 5 MG [Suspect]
     Indication: ATRIAL FIBRILLATION
     Dosage: INT:16-JAN-2014
     Route: 048
     Dates: start: 20140101
  2. PEPTAZOL [Concomitant]
     Route: 048
  3. LUVION [Concomitant]
     Route: 048
  4. CARVEDILOL [Concomitant]
     Route: 048
  5. EUTIROX [Concomitant]
     Dosage: TABS
     Route: 048

REACTIONS (4)
  - Syncope [Unknown]
  - Epistaxis [Unknown]
  - Gingival bleeding [Unknown]
  - International normalised ratio increased [Unknown]
